FAERS Safety Report 13642230 (Version 1)
Quarter: 2017Q2

REPORT INFORMATION
  Report Type: Spontaneous
  Country: US (occurrence: US)
  Receive Date: 20170612
  Receipt Date: 20170612
  Transmission Date: 20170830
  Serious: No
  Sender: FDA-Public Use
  Company Number: None

PATIENT
  Age: 54 Year
  Sex: Male

DRUGS (5)
  1. HALDOL [Concomitant]
     Active Substance: HALOPERIDOL
  2. RISPERDAL [Suspect]
     Active Substance: RISPERIDONE
  3. EFFEXOR [Concomitant]
     Active Substance: VENLAFAXINE HYDROCHLORIDE
  4. KLONOPIN [Concomitant]
     Active Substance: CLONAZEPAM
  5. ZYPREXA [Concomitant]
     Active Substance: OLANZAPINE

REACTIONS (1)
  - Adverse reaction [None]
